FAERS Safety Report 18267074 (Version 2)
Quarter: 2020Q3

REPORT INFORMATION
  Report Type: Spontaneous
  Country: IN (occurrence: IN)
  Receive Date: 20200915
  Receipt Date: 20200924
  Transmission Date: 20201103
  Serious: Yes (Death, Other)
  Sender: FDA-Public Use
  Company Number: IN-VERITY PHARMACEUTICALS, INC.-2020VTY00466

PATIENT
  Age: 52 Year
  Sex: Female

DRUGS (6)
  1. CAPECITABINE. [Suspect]
     Active Substance: CAPECITABINE
     Indication: BREAST MASS
     Dosage: UNK
     Route: 065
     Dates: start: 201502
  2. DOCETAXEL. [Suspect]
     Active Substance: DOCETAXEL
     Indication: BREAST MASS
     Dosage: UNK
     Route: 065
     Dates: start: 201502
  3. TAMOXIFEN [Suspect]
     Active Substance: TAMOXIFEN
     Indication: BREAST MASS
     Route: 065
  4. CARBOPLATIN. [Suspect]
     Active Substance: CARBOPLATIN
     Indication: BREAST MASS
     Dosage: UNK
     Route: 065
     Dates: start: 201509
  5. TRIPTORELIN PAMOATE [Suspect]
     Active Substance: TRIPTORELIN PAMOATE
     Indication: BREAST MASS
     Route: 065
  6. PACLITAXEL. [Suspect]
     Active Substance: PACLITAXEL
     Indication: BREAST MASS
     Dosage: UNK
     Route: 065
     Dates: start: 201509

REACTIONS (2)
  - Paraneoplastic syndrome [Fatal]
  - Disease progression [Fatal]
